FAERS Safety Report 8095052-4 (Version None)
Quarter: 2012Q1

REPORT INFORMATION
  Report Type: 
  Country: None (occurrence: None)
  Receive Date: 20120131
  Receipt Date: 20120131
  Transmission Date: 20120608
  Serious: Yes (Life-Threatening, Hospitalization, Disabling)
  Sender: FDA-Public Use
  Company Number: None

PATIENT
  Age: 43 Year
  Sex: Male

DRUGS (1)
  1. HALDOL [Suspect]
     Indication: AGITATION
     Dosage: 16 MG
     Route: 042
     Dates: start: 20110928, end: 20110928

REACTIONS (4)
  - PYREXIA [None]
  - TACHYCARDIA [None]
  - NEUROLEPTIC MALIGNANT SYNDROME [None]
  - BLOOD CREATINE PHOSPHOKINASE INCREASED [None]
